FAERS Safety Report 10277193 (Version 8)
Quarter: 2016Q2

REPORT INFORMATION
  Report Type: Spontaneous
  Country: US (occurrence: US)
  Receive Date: 20140703
  Receipt Date: 20160411
  Transmission Date: 20160815
  Serious: Yes (Hospitalization, Disabling, Other)
  Sender: FDA-Public Use
  Company Number: US-009507513-1407USA000947

PATIENT
  Sex: Male
  Weight: 84.81 kg

DRUGS (4)
  1. FINASTERIDE. [Suspect]
     Active Substance: FINASTERIDE
     Indication: BENIGN PROSTATIC HYPERPLASIA
     Dosage: 5 MG, QD
     Route: 048
     Dates: start: 20100429, end: 20130130
  2. PROSCAR [Suspect]
     Active Substance: FINASTERIDE
     Indication: BENIGN PROSTATIC HYPERPLASIA
     Dosage: 5 MG, QD
     Route: 048
     Dates: end: 20091024
  3. FINASTERIDE. [Suspect]
     Active Substance: FINASTERIDE
     Indication: PRODUCT USED FOR UNKNOWN INDICATION
     Dosage: 5 MG, UNKNOWN
     Route: 065
     Dates: start: 20071130, end: 20090722
  4. PROSCAR [Suspect]
     Active Substance: FINASTERIDE
     Dosage: 5 MG, UNKNOWN
     Route: 048
     Dates: start: 20140114

REACTIONS (63)
  - Transient ischaemic attack [Unknown]
  - Transurethral prostatectomy [Unknown]
  - Chronic obstructive pulmonary disease [Not Recovered/Not Resolved]
  - Drug screen positive [Unknown]
  - Musculoskeletal pain [Not Recovered/Not Resolved]
  - Hyperlipidaemia [Recovered/Resolved]
  - Urine leukocyte esterase positive [Unknown]
  - Abdominal pain [Unknown]
  - Acute myocardial infarction [Unknown]
  - Decreased appetite [Unknown]
  - Periarthritis [Unknown]
  - Libido decreased [Unknown]
  - Cerebrovascular accident [Unknown]
  - Hypotension [Unknown]
  - Pneumonia [Unknown]
  - Haemorrhoid operation [Unknown]
  - Protein urine present [Unknown]
  - Cardiac disorder [Not Recovered/Not Resolved]
  - Type 2 diabetes mellitus [Recovered/Resolved]
  - Hypothyroidism [Unknown]
  - Hypertonic bladder [Not Recovered/Not Resolved]
  - Cardiac resynchronisation therapy [Unknown]
  - Gastrooesophageal reflux disease [Unknown]
  - Blood urine present [Unknown]
  - Left ventricular failure [Unknown]
  - Loss of libido [Unknown]
  - Coagulopathy [Unknown]
  - Chest pain [Unknown]
  - Ischaemic cardiomyopathy [Unknown]
  - Thrombosis [Unknown]
  - Cervical myelopathy [Unknown]
  - Chest pain [Unknown]
  - Hepatomegaly [Unknown]
  - Erectile dysfunction [Not Recovered/Not Resolved]
  - Inguinal hernia [Unknown]
  - Prostate cancer [Unknown]
  - Mental status changes [Unknown]
  - Dysuria [Unknown]
  - Urinary retention [Unknown]
  - Genital atrophy [Unknown]
  - Type 2 diabetes mellitus [Unknown]
  - Sexual dysfunction [Not Recovered/Not Resolved]
  - Atrial fibrillation [Unknown]
  - Cerebral infarction [Not Recovered/Not Resolved]
  - Fall [Not Recovered/Not Resolved]
  - Bladder catheterisation [Unknown]
  - Coronary artery disease [Unknown]
  - Hypertension [Unknown]
  - Abnormal loss of weight [Unknown]
  - Peripheral vascular disorder [Unknown]
  - Enteritis [Unknown]
  - Aortic aneurysm [Unknown]
  - Treatment noncompliance [Unknown]
  - Peptic ulcer [Unknown]
  - Intervertebral disc degeneration [Unknown]
  - Hemiparesis [Not Recovered/Not Resolved]
  - Troponin increased [Unknown]
  - Arthralgia [Unknown]
  - Bladder outlet obstruction [Unknown]
  - Fall [Unknown]
  - Osteoarthritis [Unknown]
  - Hypotension [Unknown]
  - Mitral valve disease [Unknown]

NARRATIVE: CASE EVENT DATE: 2000
